FAERS Safety Report 9057223 (Version 1)
Quarter: 2013Q1

REPORT INFORMATION
  Report Type: Spontaneous
  Country: US (occurrence: US)
  Receive Date: 20130131
  Receipt Date: 20130131
  Transmission Date: 20140127
  Serious: Yes (Hospitalization)
  Sender: FDA-Public Use
  Company Number: US-GLAXOSMITHKLINE-A0897040A

PATIENT
  Age: 44 Year
  Sex: Male
  Weight: 90 kg

DRUGS (11)
  1. AVANDIA [Suspect]
     Indication: TYPE 2 DIABETES MELLITUS
     Dosage: 8MG PER DAY
     Route: 048
     Dates: start: 20000404, end: 20050915
  2. HUMULIN [Concomitant]
  3. HALDOL [Concomitant]
  4. EFFEXOR XR [Concomitant]
  5. SEROQUEL [Concomitant]
  6. LANTUS [Concomitant]
  7. HUMALOG [Concomitant]
  8. CIALIS [Concomitant]
  9. LISINOPRIL [Concomitant]
  10. VIAGRA [Concomitant]
  11. PRANDIN [Concomitant]

REACTIONS (2)
  - Cerebrovascular accident [Recovering/Resolving]
  - Cardiovascular disorder [Unknown]
